FAERS Safety Report 5369793-3 (Version None)
Quarter: 2007Q2

REPORT INFORMATION
  Report Type: 
  Country: None (occurrence: None)
  Receive Date: 20070621
  Receipt Date: 20070611
  Transmission Date: 20071010
  Serious: Yes (Other)
  Sender: FDA-Public Use
  Company Number: 233761K07USA

PATIENT
  Age: 38 Year
  Sex: Female
  Weight: 38.5557 kg

DRUGS (13)
  1. REBIF [Suspect]
     Indication: MULTIPLE SCLEROSIS
     Dosage: 44 MCG, 3 IN 1 WEEKS, SUBCUTANEOUS
     Route: 058
     Dates: start: 20061107
  2. ZOLOFT [Concomitant]
  3. PLENDIL [Concomitant]
  4. PRILOSEC [Concomitant]
  5. DONNATAL [Concomitant]
  6. ESGIC (AXOTAL /00727001/) [Concomitant]
  7. VICOPROFEN (VICOPRFEN) [Concomitant]
  8. XANAX [Concomitant]
  9. VICODIN [Concomitant]
  10. PROVIGIL [Concomitant]
  11. FOLIC ACID [Concomitant]
  12. MULTI-VITAMINS [Concomitant]
  13. LORAZEPAM [Concomitant]

REACTIONS (5)
  - ANGIOPATHY [None]
  - CHOLELITHIASIS [None]
  - HEPATIC NEOPLASM [None]
  - PANCREATIC DISORDER [None]
  - WEIGHT DECREASED [None]
